FAERS Safety Report 6272673-2 (Version None)
Quarter: 2009Q3

REPORT INFORMATION
  Report Type: 
  Country: None (occurrence: None)
  Receive Date: 20090717
  Receipt Date: 20090714
  Transmission Date: 20100115
  Serious: Yes (Life-Threatening, Hospitalization, Disabling, Other)
  Sender: FDA-Public Use
  Company Number: CA-ASTRAZENECA-2002UW16280

PATIENT
  Age: 76 Year
  Sex: Female
  Weight: 80.7 kg

DRUGS (1)
  1. NOLVADEX [Suspect]
     Indication: BREAST CANCER FEMALE
     Dosage: 2 TABS QD
     Route: 048
     Dates: start: 19980423, end: 19980801

REACTIONS (2)
  - CAROTID ARTERY ANEURYSM [None]
  - VISUAL ACUITY REDUCED [None]
